FAERS Safety Report 13277374 (Version 1)
Quarter: 2017Q1

REPORT INFORMATION
  Report Type: Spontaneous
  Country: US (occurrence: US)
  Receive Date: 20170228
  Receipt Date: 20170228
  Transmission Date: 20170428
  Serious: Yes (Other)
  Sender: FDA-Public Use
  Company Number: US-INDIVIOR LIMITED-INDV-099135-2017

PATIENT
  Age: 37 Year
  Sex: Female

DRUGS (1)
  1. SUBOXONE [Suspect]
     Active Substance: BUPRENORPHINE HYDROCHLORIDE\NALOXONE HYDROCHLORIDE
     Indication: DRUG DEPENDENCE
     Dosage: 8MG, ONE TIMES PER DAY
     Route: 060
     Dates: start: 2009

REACTIONS (5)
  - Depression [Unknown]
  - Anxiety [Unknown]
  - Anaemia [Unknown]
  - Addison^s disease [Unknown]
  - Adrenal disorder [Unknown]
